FAERS Safety Report 5327190-0 (Version None)
Quarter: 2007Q2

REPORT INFORMATION
  Report Type: 
  Country: None (occurrence: None)
  Receive Date: 20070517
  Receipt Date: 20070515
  Transmission Date: 20071010
  Serious: Yes (Other)
  Sender: FDA-Public Use
  Company Number: PHNU2007DE01803

PATIENT
  Sex: Male

DRUGS (2)
  1. CLOZAPINE [Suspect]
     Dosage: 900 MG/DAY
     Route: 048
  2. FLUANXOL [Concomitant]

REACTIONS (2)
  - GROIN PAIN [None]
  - PLEUROTHOTONUS [None]
